FAERS Safety Report 5212432-2 (Version None)
Quarter: 2006Q4

REPORT INFORMATION
  Report Type: 
  Country: None (occurrence: None)
  Receive Date: 20061130
  Receipt Date: 20060525
  Transmission Date: 20070319
  Serious: Yes (Disabling, Other)
  Sender: FDA-Public Use
  Company Number: WAES 0605USA04629

PATIENT
  Age: 63 Year
  Sex: Female

DRUGS (3)
  1. FOSAMAX [Suspect]
     Indication: OSTEOPOROSIS
     Dosage: 70 MG/WKY/PO
     Route: 048
     Dates: start: 19960101, end: 20060524
  2. TYLENOL W/ CODEINE [Concomitant]
  3. PREDNISONE [Concomitant]

REACTIONS (4)
  - BREAST CANCER [None]
  - GINGIVAL BLISTER [None]
  - OSTEONECROSIS [None]
  - TOOTH DISORDER [None]
